FAERS Safety Report 16918442 (Version 2)
Quarter: 2020Q1

REPORT INFORMATION
  Report Type: Spontaneous
  Country: GR (occurrence: GR)
  Receive Date: 20191015
  Receipt Date: 20200221
  Transmission Date: 20200409
  Serious: Yes (Other)
  Sender: FDA-Public Use
  Company Number: GR-JNJFOC-20191016406

PATIENT
  Age: 27 Year
  Sex: Female

DRUGS (2)
  1. RIVAROXABAN [Suspect]
     Active Substance: RIVAROXABAN
     Dosage: 20 MG, QD
     Route: 048
     Dates: start: 20191006
  2. RIVAROXABAN [Suspect]
     Active Substance: RIVAROXABAN
     Indication: PULMONARY EMBOLISM
     Dosage: 20 MG, QD
     Route: 048
     Dates: start: 201402, end: 201910

REACTIONS (8)
  - Paraesthesia [Unknown]
  - Anxiety [Unknown]
  - Vaginal cyst [Recovered/Resolved]
  - Intentional product misuse [Unknown]
  - Vaginal haemorrhage [Recovered/Resolved]
  - Tachycardia [Unknown]
  - Peripheral swelling [Unknown]
  - Hypercoagulation [Unknown]

NARRATIVE: CASE EVENT DATE: 201908
